FAERS Safety Report 15756646 (Version 1)
Quarter: 2018Q4

REPORT INFORMATION
  Report Type: Spontaneous
  Country: GB (occurrence: GB)
  Receive Date: 20181224
  Receipt Date: 20181224
  Transmission Date: 20190205
  Serious: Yes (Death, Hospitalization, Other)
  Sender: FDA-Public Use
  Company Number: GB-PFIZER INC-18704

PATIENT
  Age: 78 Year
  Sex: Female
  Weight: 70 kg

DRUGS (2)
  1. CISPLATIN. [Suspect]
     Active Substance: CISPLATIN
     Indication: NON-SMALL CELL LUNG CANCER
     Dosage: 80 MG, FREQ: FREQ UNK
     Route: 042
     Dates: start: 20070830
  2. VINORELBINE TARTRATE. [Suspect]
     Active Substance: VINORELBINE TARTRATE
     Indication: NON-SMALL CELL LUNG CANCER
     Dosage: 50 MG, FREQ: FREQ UNK
     Route: 042
     Dates: start: 20070830

REACTIONS (2)
  - Cardiac arrest [Fatal]
  - Neutropenic sepsis [Unknown]

NARRATIVE: CASE EVENT DATE: 20070910
